FAERS Safety Report 7646956-5 (Version None)
Quarter: 2011Q3

REPORT INFORMATION
  Report Type: 
  Country: None (occurrence: None)
  Receive Date: 20110801
  Receipt Date: 20110726
  Transmission Date: 20111222
  Serious: Yes (Hospitalization)
  Sender: FDA-Public Use
  Company Number: ES-JNJFOC-20110706213

PATIENT
  Sex: Male

DRUGS (9)
  1. PREDNISONE [Suspect]
     Indication: PROSTATE CANCER METASTATIC
     Route: 048
  2. LEVETIRACETAM [Concomitant]
     Indication: METASTASES TO CENTRAL NERVOUS SYSTEM
     Route: 048
     Dates: start: 20110327
  3. ABIRATERONE ACETATE [Suspect]
     Indication: PROSTATE CANCER METASTATIC
     Route: 048
     Dates: start: 20110624, end: 20110711
  4. ABIRATERONE ACETATE [Suspect]
     Route: 048
     Dates: start: 20110701
  5. ENOXAPARIN SODIUM [Concomitant]
     Indication: MOBILITY DECREASED
     Route: 058
     Dates: start: 20110419
  6. RISPERIDONE [Concomitant]
     Indication: IMPULSE-CONTROL DISORDER
     Route: 048
     Dates: start: 20110606
  7. OLANZAPINE [Suspect]
     Indication: IMPULSE-CONTROL DISORDER
     Route: 048
     Dates: end: 20110701
  8. RISPERIDONE [Concomitant]
     Route: 048
     Dates: start: 20110701
  9. LORAZEPAM [Concomitant]
     Indication: ANXIETY
     Route: 048
     Dates: start: 20080110

REACTIONS (1)
  - PSYCHOMOTOR HYPERACTIVITY [None]
